FAERS Safety Report 15630260 (Version 1)
Quarter: 2018Q4

REPORT INFORMATION
  Report Type: Spontaneous
  Country: US (occurrence: US)
  Receive Date: 20181116
  Receipt Date: 20181116
  Transmission Date: 20190205
  Serious: Yes (Other)
  Sender: FDA-Public Use
  Company Number: None

PATIENT
  Age: 66 Year
  Sex: Female

DRUGS (1)
  1. LOSARTAN 100MG [Suspect]
     Active Substance: LOSARTAN
     Indication: HYPERTENSION
     Dosage: SEVERAL DAYS LATER
     Route: 048
     Dates: start: 20180730

REACTIONS (1)
  - Urticaria [None]

NARRATIVE: CASE EVENT DATE: 20180730
